FAERS Safety Report 23869030 (Version 1)
Quarter: 2024Q2

REPORT INFORMATION
  Report Type: Spontaneous
  Country: JP (occurrence: None)
  Receive Date: 20240517
  Receipt Date: 20240517
  Transmission Date: 20240716
  Serious: Yes (Other)
  Sender: FDA-Public Use
  Company Number: 2024A111385

PATIENT
  Sex: Male

DRUGS (2)
  1. IRESSA [Suspect]
     Active Substance: GEFITINIB
     Indication: Lung neoplasm malignant
     Route: 048
     Dates: start: 20140804
  2. IRESSA [Suspect]
     Active Substance: GEFITINIB
     Indication: Lung neoplasm malignant
     Route: 048

REACTIONS (3)
  - Metastases to pleura [Unknown]
  - Gastric ulcer [Unknown]
  - Back pain [Unknown]

NARRATIVE: CASE EVENT DATE: 20140801
